FAERS Safety Report 20819481 (Version 2)
Quarter: 2022Q2

REPORT INFORMATION
  Report Type: Spontaneous
  Country: SE (occurrence: SE)
  Receive Date: 20220512
  Receipt Date: 20220531
  Transmission Date: 20220721
  Serious: Yes (Death, Other)
  Sender: FDA-Public Use
  Company Number: SE-PFM-2022-04355

PATIENT
  Sex: Female

DRUGS (7)
  1. BRAFTOVI [Suspect]
     Active Substance: ENCORAFENIB
     Indication: Colon cancer metastatic
     Dosage: 300 MG, QD (1/DAY), 4 CAPSULES
     Route: 048
  2. CETUXIMAB [Concomitant]
     Active Substance: CETUXIMAB
     Indication: Colon cancer metastatic
     Dosage: UNK, MONTHLY, EVERY 14TH DAY OF THE CYCLE
     Route: 042
  3. LYMECYCLINE [Concomitant]
     Active Substance: LYMECYCLINE
     Dosage: UNK
     Route: 048
  4. CORTISONE [Concomitant]
     Active Substance: CORTISONE
     Indication: Eyelid rash
     Dosage: UNK
     Route: 061
  5. NAPROXEN [Concomitant]
     Active Substance: NAPROXEN
     Indication: Arthralgia
     Dosage: UNK
     Route: 065
  6. STIVARGA [Concomitant]
     Active Substance: REGORAFENIB
     Indication: Colon cancer metastatic
     Dosage: UNK
     Route: 048
  7. LONSURF [Concomitant]
     Active Substance: TIPIRACIL HYDROCHLORIDE\TRIFLURIDINE
     Indication: Colon cancer metastatic
     Dosage: UNK
     Route: 048

REACTIONS (9)
  - Death [Fatal]
  - Dyspnoea exertional [Unknown]
  - Swelling [Unknown]
  - Epistaxis [Unknown]
  - Headache [Recovered/Resolved]
  - Abdominal pain upper [Recovered/Resolved]
  - Fatigue [Unknown]
  - Arthralgia [Unknown]
  - Rash [Unknown]
